FAERS Safety Report 5680932-7 (Version None)
Quarter: 2008Q1

REPORT INFORMATION
  Report Type: 
  Country: None (occurrence: None)
  Receive Date: 20080326
  Receipt Date: 20080319
  Transmission Date: 20080703
  Serious: Yes (Death, Hospitalization)
  Sender: FDA-Public Use
  Company Number: JP-GENENTECH-253404

PATIENT
  Sex: Male
  Weight: 68 kg

DRUGS (11)
  1. RITUXAN [Suspect]
     Indication: NON-HODGKIN'S LYMPHOMA
     Dosage: 660 MG, QD
     Dates: start: 20041027
  2. CYCLOPHOSPHAMIDE [Concomitant]
     Indication: NON-HODGKIN'S LYMPHOMA
     Dosage: 1100 MG, UNK
     Dates: start: 20041002
  3. DOXORUBICIN HCL [Concomitant]
     Indication: NON-HODGKIN'S LYMPHOMA
     Dosage: 45 MG, UNK
     Dates: start: 20041002
  4. PREDNISOLONE [Concomitant]
     Indication: NON-HODGKIN'S LYMPHOMA
     Dosage: 200 MG, UNK
     Dates: start: 20041002
  5. CYTARABINE [Concomitant]
     Indication: NON-HODGKIN'S LYMPHOMA
     Dosage: 550 MG, QD
     Dates: start: 20041013
  6. BLEOMYCIN SULFATE [Concomitant]
     Indication: NON-HODGKIN'S LYMPHOMA
     Dosage: 9 MG, UNK
     Dates: start: 20041013
  7. METHOTREXATE [Concomitant]
     Indication: NON-HODGKIN'S LYMPHOMA
     Dosage: 220 MG, UNK
     Dates: start: 20041013
  8. ETOPOSIDE [Concomitant]
     Indication: NON-HODGKIN'S LYMPHOMA
     Dosage: 700 MG, UNK
     Dates: start: 20041006
  9. CARBOPLATIN [Concomitant]
     Indication: NON-HODGKIN'S LYMPHOMA
  10. RANIMUSTINE [Concomitant]
     Indication: NON-HODGKIN'S LYMPHOMA
  11. VINCRISTINE [Concomitant]
     Indication: B-CELL LYMPHOMA
     Dosage: 2 MG, UNK
     Dates: start: 20041002

REACTIONS (3)
  - AMYLOIDOSIS [None]
  - HEPATITIS C [None]
  - LARGE INTESTINAL HAEMORRHAGE [None]
